FAERS Safety Report 24564150 (Version 1)
Quarter: 2024Q4

REPORT INFORMATION
  Report Type: Spontaneous
  Country: CN (occurrence: CN)
  Receive Date: 20241030
  Receipt Date: 20241030
  Transmission Date: 20250114
  Serious: Yes (Other)
  Sender: MERCK
  Company Number: CN-BAYER-2024A152893

PATIENT
  Age: 69 Year
  Sex: Female
  Weight: 58.9 kg

DRUGS (2)
  1. VERICIGUAT [Suspect]
     Active Substance: VERICIGUAT
     Indication: Ischaemic cardiomyopathy
     Dosage: 2.5 MG, QD
     Route: 048
     Dates: start: 20241010, end: 20241013
  2. ATORVASTATIN CALCIUM [Suspect]
     Active Substance: ATORVASTATIN CALCIUM
     Indication: Arteriosclerosis coronary artery
     Dosage: 20 MG, QD
     Route: 048
     Dates: start: 20241008, end: 20241013

REACTIONS (3)
  - Aspartate aminotransferase increased [Recovering/Resolving]
  - Alanine aminotransferase increased [Recovering/Resolving]
  - Off label use [Unknown]

NARRATIVE: CASE EVENT DATE: 20241010
